FAERS Safety Report 4836324-3 (Version None)
Quarter: 2005Q4

REPORT INFORMATION
  Report Type: 
  Country: None (occurrence: None)
  Receive Date: 20051121
  Receipt Date: 20051121
  Transmission Date: 20060501
  Serious: Yes (Life-Threatening)
  Sender: FDA-Public Use
  Company Number: None

PATIENT
  Sex: Female
  Weight: 53.978 kg

DRUGS (3)
  1. LEXAPRO [Suspect]
     Indication: ANGER
     Dosage: HALF TABLET   DAILY   PO
     Route: 048
     Dates: start: 20050525, end: 20050531
  2. LEXAPRO [Suspect]
     Indication: ANXIETY
     Dosage: HALF TABLET   DAILY   PO
     Route: 048
     Dates: start: 20050525, end: 20050531
  3. LEXAPRO [Suspect]
     Indication: DEPRESSION
     Dosage: HALF TABLET   DAILY   PO
     Route: 048
     Dates: start: 20050525, end: 20050531

REACTIONS (4)
  - DIZZINESS [None]
  - HOMICIDAL IDEATION [None]
  - NAUSEA [None]
  - SUICIDAL IDEATION [None]
